FAERS Safety Report 8313508-3 (Version None)
Quarter: 2012Q2

REPORT INFORMATION
  Report Type: 
  Country: None (occurrence: None)
  Receive Date: 20120424
  Receipt Date: 20120412
  Transmission Date: 20120825
  Serious: Yes (Other)
  Sender: FDA-Public Use
  Company Number: 1258196

PATIENT
  Age: 75 Year
  Sex: Female

DRUGS (1)
  1. PACLITAXEL [Suspect]
     Indication: OVARIAN CANCER
     Dosage: 135 MG/M2 MILLIGRAM(S)/SQ. METER INTRAVENOUS DRIP
     Route: 041
     Dates: start: 20120404, end: 20120404

REACTIONS (6)
  - LARYNGOSPASM [None]
  - TACHYCARDIA [None]
  - BLOOD PRESSURE INCREASED [None]
  - FLUSHING [None]
  - HYPERGLYCAEMIA [None]
  - INFUSION RELATED REACTION [None]
